FAERS Safety Report 23367491 (Version 1)
Quarter: 2024Q1

REPORT INFORMATION
  Report Type: Other
  Country: US (occurrence: US)
  Receive Date: 20240104
  Receipt Date: 20240104
  Transmission Date: 20240409
  Serious: Yes (Hospitalization, Other)
  Sender: FDA-Public Use
  Company Number: US-Osmotica_Pharmaceutical_US_LLC-POI0573202300212

PATIENT
  Age: 39 Year
  Sex: Female

DRUGS (7)
  1. DIVIGEL [Suspect]
     Active Substance: ESTRADIOL
     Indication: In vitro fertilisation
     Dosage: UNKNOWN
     Route: 065
     Dates: start: 2023
  2. PROGESTERONE [Suspect]
     Active Substance: PROGESTERONE
     Indication: In vitro fertilisation
     Dosage: UNKNOWN
     Route: 065
     Dates: start: 2023
  3. LEUPROLIDE ACETATE [Concomitant]
     Active Substance: LEUPROLIDE ACETATE
     Indication: In vitro fertilisation
     Dosage: UNKNOWN
     Route: 065
     Dates: start: 2023, end: 2023
  4. FOLLITROPIN [Concomitant]
     Active Substance: FOLLITROPIN
     Indication: In vitro fertilisation
     Dosage: UNKNOWN
     Route: 065
     Dates: start: 2023, end: 2023
  5. MENOTROPINS [Concomitant]
     Active Substance: MENOTROPINS
     Indication: In vitro fertilisation
     Dosage: UNKNOWN
     Route: 065
     Dates: start: 2023, end: 2023
  6. CHORIONIC GONADOTROPIN [Concomitant]
     Active Substance: CHORIOGONADOTROPIN ALFA
     Indication: In vitro fertilisation
     Dosage: UNKNOWN
     Route: 065
     Dates: start: 2023, end: 2023
  7. BUDESONIDE [Concomitant]
     Active Substance: BUDESONIDE
     Indication: Colitis ulcerative
     Dosage: UNKNOWN
     Route: 065

REACTIONS (3)
  - Optic neuropathy [Not Recovered/Not Resolved]
  - Optic nerve sheath meningioma [Not Recovered/Not Resolved]
  - Product use in unapproved indication [Not Recovered/Not Resolved]

NARRATIVE: CASE EVENT DATE: 20230101
